FAERS Safety Report 13793095 (Version 1)
Quarter: 2017Q3

REPORT INFORMATION
  Report Type: Spontaneous
  Country: US (occurrence: US)
  Receive Date: 20170726
  Receipt Date: 20170726
  Transmission Date: 20171127
  Serious: No
  Sender: FDA-Public Use
  Company Number: US-BAYER-2017-137921

PATIENT
  Sex: Female

DRUGS (1)
  1. MIRALAX [Suspect]
     Active Substance: POLYETHYLENE GLYCOL 3350
     Indication: COLONOSCOPY
     Dosage: ;238G IN 64OZ GATORADE DOSE
     Route: 065

REACTIONS (5)
  - Wrong technique in product usage process [Unknown]
  - Product use in unapproved indication [Unknown]
  - Off label use [Unknown]
  - Inappropriate prescribing [Unknown]
  - Wrong technique in product usage process [Unknown]

NARRATIVE: CASE EVENT DATE: 20170718
